FAERS Safety Report 17420440 (Version 3)
Quarter: 2020Q4

REPORT INFORMATION
  Report Type: Spontaneous
  Country: US (occurrence: US)
  Receive Date: 20200214
  Receipt Date: 20201117
  Transmission Date: 20210113
  Serious: No
  Sender: FDA-Public Use
  Company Number: US-VIFOR (INTERNATIONAL) INC.-VIT-2020-01065

PATIENT
  Age: 67 Year
  Sex: Male

DRUGS (10)
  1. DULOXETINE HCL [Concomitant]
     Active Substance: DULOXETINE HYDROCHLORIDE
     Dates: start: 20200713
  2. VELTASSA [Suspect]
     Active Substance: PATIROMER
     Route: 048
     Dates: start: 20200824
  3. DULOXETINE HCL [Concomitant]
     Active Substance: DULOXETINE HYDROCHLORIDE
     Dates: start: 20200812
  4. VELTASSA [Suspect]
     Active Substance: PATIROMER
     Indication: HYPERKALAEMIA
     Route: 048
  5. BACLOFEN. [Concomitant]
     Active Substance: BACLOFEN
     Dates: start: 20200803
  6. BUPRENORPHINE HCL [Concomitant]
     Active Substance: BUPRENORPHINE HYDROCHLORIDE
     Dates: start: 20200722
  7. BUPRENORPHINE HCL [Concomitant]
     Active Substance: BUPRENORPHINE HYDROCHLORIDE
     Dates: start: 20200819
  8. FLUZONE HIGH DOSE QUAD [Concomitant]
     Dates: start: 20200815
  9. SUPREP BOWEL PREP [Concomitant]
     Active Substance: MAGNESIUM SULFATE\POTASSIUM SULFATE\SODIUM SULFATE
     Dates: start: 20200810
  10. AMLODIPINE BESYLATE. [Concomitant]
     Active Substance: AMLODIPINE BESYLATE
     Dates: start: 20200814

REACTIONS (2)
  - Pruritus [Not Recovered/Not Resolved]
  - Constipation [Not Recovered/Not Resolved]

NARRATIVE: CASE EVENT DATE: 202001
